FAERS Safety Report 8612160-7 (Version None)
Quarter: 2012Q3

REPORT INFORMATION
  Report Type: 
  Country: None (occurrence: None)
  Receive Date: 20120822
  Receipt Date: 20120815
  Transmission Date: 20120928
  Serious: Yes (Other)
  Sender: FDA-Public Use
  Company Number: US-PFIZER INC-2012200130

PATIENT
  Age: 10 Year
  Sex: Male
  Weight: 33.107 kg

DRUGS (7)
  1. GENOTROPIN [Suspect]
     Dosage: 0.6 MG, DAILY
     Dates: start: 20120301
  2. CALCIUM [Concomitant]
     Indication: SUPPLEMENTATION THERAPY
     Dosage: UNK
  3. MULTI-VITAMINS [Concomitant]
     Indication: SUPPLEMENTATION THERAPY
     Dosage: UNK
  4. SELENIUM [Concomitant]
     Indication: SUPPLEMENTATION THERAPY
     Dosage: UNK
  5. POTASSIUM CITRATE [Concomitant]
     Indication: SUPPLEMENTATION THERAPY
     Dosage: UNK
  6. GENOTROPIN [Suspect]
     Indication: BODY HEIGHT BELOW NORMAL
     Dosage: 0.6 MG, DAILY
     Dates: start: 20110101
  7. MIRALAX [Concomitant]
     Dosage: UNK

REACTIONS (1)
  - HYPOTHALAMO-PITUITARY DISORDER [None]
